FAERS Safety Report 5106846-9 (Version None)
Quarter: 2006Q3

REPORT INFORMATION
  Report Type: 
  Country: None (occurrence: None)
  Receive Date: 20060912
  Receipt Date: 20060831
  Transmission Date: 20061208
  Serious: Yes (Hospitalization)
  Sender: FDA-Public Use
  Company Number: HQWYE671107JUL06

PATIENT
  Age: 48 Year
  Sex: Female

DRUGS (3)
  1. NEOGYNON (LEVONORGESTREL/ETHINYL ESTRADIOL, TABLET) [Suspect]
     Indication: MENORRHAGIA
     Dosage: SEE IMAGE
     Route: 048
     Dates: end: 20040204
  2. NEOGYNON (LEVONORGESTREL/ETHINYL ESTRADIOL, TABLET) [Suspect]
     Indication: MENORRHAGIA
     Dosage: SEE IMAGE
     Route: 048
     Dates: start: 20040130
  3. SIMVASTATIN [Concomitant]

REACTIONS (9)
  - BLOOD PRESSURE DIASTOLIC INCREASED [None]
  - BLOOD PRESSURE SYSTOLIC DECREASED [None]
  - CEREBRAL INFARCTION [None]
  - CEREBRAL THROMBOSIS [None]
  - COAGULATION FACTOR V LEVEL DECREASED [None]
  - DRUG INTOLERANCE [None]
  - DYSPNOEA [None]
  - GENITAL HAEMORRHAGE [None]
  - PROTHROMBIN TIME SHORTENED [None]
